FAERS Safety Report 7888362-4 (Version None)
Quarter: 2011Q4

REPORT INFORMATION
  Report Type: 
  Country: None (occurrence: None)
  Receive Date: 20111103
  Receipt Date: 20111027
  Transmission Date: 20120403
  Serious: Yes (Other)
  Sender: FDA-Public Use
  Company Number: PHHO2011FR18178

PATIENT
  Sex: Male
  Weight: 80 kg

DRUGS (4)
  1. IFOSFAMIDE [Suspect]
     Indication: BONE SARCOMA
     Dosage: UNK
     Route: 042
     Dates: start: 20080123
  2. DOXORUBICIN HCL [Concomitant]
     Indication: BONE SARCOMA
     Dosage: UNK
     Route: 042
     Dates: start: 20080122
  3. ZOLEDRONIC [Suspect]
     Indication: BONE SARCOMA
     Dosage: UNK
     Route: 042
     Dates: start: 20080128
  4. CISPLATIN [Suspect]
     Indication: BONE SARCOMA
     Dosage: UNK
     Route: 042
     Dates: start: 20080122

REACTIONS (1)
  - RENAL TUBULAR DISORDER [None]
